FAERS Safety Report 9189346 (Version 7)
Quarter: 2016Q2

REPORT INFORMATION
  Report Type: Report from Study
  Country: BR (occurrence: BR)
  Receive Date: 20130326
  Receipt Date: 20160426
  Transmission Date: 20160815
  Serious: Yes (Other)
  Sender: FDA-Public Use
  Company Number: PHHY2012BR099430

PATIENT
  Age: 72 Year
  Sex: Female
  Weight: 61.5 kg

DRUGS (15)
  1. SOMALGIN CARDIO [Suspect]
     Active Substance: ASPIRIN\DIHYDROXYALUMINUM AMINOACETATE ANHYDROUS\MAGNESIUM CARBONATE
     Indication: CARDIOVASCULAR EVENT PROPHYLAXIS
     Dosage: 1 TABLET (200 MG) AFTER LUNCH, DAILY
     Route: 048
  2. SOMALGIN CARDIO [Suspect]
     Active Substance: ASPIRIN\DIHYDROXYALUMINUM AMINOACETATE ANHYDROUS\MAGNESIUM CARBONATE
     Indication: CARDIAC DISORDER
  3. VYTORIN [Suspect]
     Active Substance: EZETIMIBE\SIMVASTATIN
     Indication: BLOOD CHOLESTEROL INCREASED
     Dosage: 1 TABLET (10 MG EZET/20 MG SIMVA) AT NIGHT
     Route: 048
  4. GALVUS MET [Suspect]
     Active Substance: METFORMIN HYDROCHLORIDE\VILDAGLIPTIN
     Indication: TYPE 2 DIABETES MELLITUS
     Dosage: 2 DF (METFORMIN 850 MG, VILDAGLIPTIN 50 MG) (1 TABLET AT MORNING AND 1 TABLET AT NIGHT), DAILY
     Route: 048
     Dates: start: 2007
  5. DIOVAN AMLO FIX [Suspect]
     Active Substance: AMLODIPINE\VALSARTAN
     Indication: HYPERTENSION
     Dosage: 1 DF (160 MG VALS/ 05 MG AMLO) DAILY
     Dates: start: 2005
  6. FRONTAL [Suspect]
     Active Substance: ALPRAZOLAM
     Indication: AGITATION
     Dosage: 1 TABLET (0.2 MG) AT NIGHT
     Route: 048
  7. MANIVASC [Concomitant]
     Active Substance: MANIDIPINE HYDROCHLORIDE
     Indication: HYPERTENSION
     Dosage: 1 DF, QD
     Route: 048
  8. GLIMEPIRIDE. [Suspect]
     Active Substance: GLIMEPIRIDE
     Indication: DIABETES MELLITUS
     Dosage: 1 DF (1 MG) AT LUNCH, DAILY
     Route: 048
  9. SELOZOK [Concomitant]
     Active Substance: METOPROLOL SUCCINATE
     Indication: HYPERTENSION
     Dosage: 1 TABLET  (50 MG) AT MORNING
     Route: 048
     Dates: start: 2005
  10. SIMVASTATIN. [Concomitant]
     Active Substance: SIMVASTATIN
     Indication: BLOOD CHOLESTEROL INCREASED
     Dosage: 1 TABLET (20 MG) DAILY, AT NIGHT
     Route: 048
  11. DIOVAN AMLO FIX [Suspect]
     Active Substance: AMLODIPINE\VALSARTAN
     Dosage: 1 DF (160 MG VALS/10 MG AMLO), , QD (IN THE MORNING)
     Route: 048
     Dates: start: 201212, end: 2013
  12. GALVUS MET [Suspect]
     Active Substance: METFORMIN HYDROCHLORIDE\VILDAGLIPTIN
     Dosage: 1 DF, (IN THE MORNING), QD
     Route: 048
     Dates: start: 20140401, end: 20140402
  13. ZETSIM [Suspect]
     Active Substance: EZETIMIBE\SIMVASTATIN
     Indication: BLOOD CHOLESTEROL INCREASED
     Dosage: 1 DF, AT NIGHT
     Route: 048
  14. DIOVAN HCT [Suspect]
     Active Substance: HYDROCHLOROTHIAZIDE\VALSARTAN
     Indication: HYPERTENSION
     Dosage: 1 DF, QD
     Route: 048
     Dates: start: 2005
  15. GALVUS MET [Suspect]
     Active Substance: METFORMIN HYDROCHLORIDE\VILDAGLIPTIN
     Dosage: 2 DF (METFORMIN 850 MG, VILDAGLIPTIN 50 MG), DAILY
     Route: 048
     Dates: start: 20140403

REACTIONS (31)
  - Pruritus [Not Recovered/Not Resolved]
  - Flatulence [Not Recovered/Not Resolved]
  - Osteoarthritis [Not Recovered/Not Resolved]
  - Dizziness [Not Recovered/Not Resolved]
  - Dry mouth [Not Recovered/Not Resolved]
  - Frequent bowel movements [Not Recovered/Not Resolved]
  - Anxiety [Not Recovered/Not Resolved]
  - Concomitant disease progression [Not Recovered/Not Resolved]
  - Erythema [Not Recovered/Not Resolved]
  - Hypertension [Unknown]
  - Labyrinthitis [Not Recovered/Not Resolved]
  - Blood cholesterol decreased [Unknown]
  - Exostosis [Unknown]
  - Depression [Recovering/Resolving]
  - Psoriasis [Not Recovered/Not Resolved]
  - Burning sensation [Not Recovered/Not Resolved]
  - Glycosylated haemoglobin [Unknown]
  - Bone disorder [Unknown]
  - Joint destruction [Unknown]
  - Hypoaesthesia [Not Recovered/Not Resolved]
  - Varicose vein [Not Recovered/Not Resolved]
  - Gait disturbance [Unknown]
  - Feeling abnormal [Not Recovered/Not Resolved]
  - Wound [Not Recovered/Not Resolved]
  - Lower extremity mass [Not Recovered/Not Resolved]
  - Erythema of eyelid [Not Recovered/Not Resolved]
  - Malaise [Not Recovered/Not Resolved]
  - Tendonitis [Not Recovered/Not Resolved]
  - Memory impairment [Not Recovered/Not Resolved]
  - Skin exfoliation [Not Recovered/Not Resolved]
  - Nausea [Not Recovered/Not Resolved]

NARRATIVE: CASE EVENT DATE: 2010
